FAERS Safety Report 24074086 (Version 1)
Quarter: 2024Q3

REPORT INFORMATION
  Report Type: Spontaneous
  Country: FR (occurrence: FR)
  Receive Date: 20240710
  Receipt Date: 20240710
  Transmission Date: 20241017
  Serious: No
  Sender: PIERRE FABRE MEDICAMENT
  Company Number: FR-PFM-2024-02159

PATIENT
  Age: 72 Year
  Sex: Female

DRUGS (13)
  1. PROPRANOLOL [Suspect]
     Active Substance: PROPRANOLOL HYDROCHLORIDE
     Indication: Tachycardia
     Dosage: 20 MG, BID (2/DAY)
     Route: 065
     Dates: start: 202106
  2. PROPRANOLOL [Suspect]
     Active Substance: PROPRANOLOL HYDROCHLORIDE
     Indication: Off label use
  3. CLOBETASOL PROPIONATE [Suspect]
     Active Substance: CLOBETASOL PROPIONATE
     Indication: Rash pruritic
     Dosage: UNK
     Route: 065
     Dates: start: 201910, end: 202004
  4. CLOBETASOL PROPIONATE [Suspect]
     Active Substance: CLOBETASOL PROPIONATE
     Indication: Alopecia
     Dosage: UNK
     Route: 061
     Dates: start: 202102
  5. CLOBETASOL PROPIONATE [Suspect]
     Active Substance: CLOBETASOL PROPIONATE
     Indication: Skin lesion inflammation
  6. MECHLORETHAMINE [Suspect]
     Active Substance: MECHLORETHAMINE
     Indication: Rash pruritic
     Dosage: UNK
     Route: 065
     Dates: start: 201910, end: 202004
  7. MECHLORETHAMINE [Suspect]
     Active Substance: MECHLORETHAMINE
     Indication: Alopecia
  8. SALICYLIC ACID [Suspect]
     Active Substance: SALICYLIC ACID
     Indication: Rash pruritic
     Dosage: UNK
     Route: 065
     Dates: start: 201910, end: 202004
  9. SALICYLIC ACID [Suspect]
     Active Substance: SALICYLIC ACID
     Indication: Alopecia
  10. CARBIMAZOLE [Concomitant]
     Active Substance: CARBIMAZOLE
     Indication: Hyperthyroidism
     Dosage: 20 MG DAILY
     Route: 065
     Dates: start: 202106
  11. BEXAROTENE [Concomitant]
     Active Substance: BEXAROTENE
     Indication: Skin plaque
     Dosage: FROM 225 TO 300 MG/M2/DAY AFTER 15 DAYS
     Route: 065
     Dates: start: 201804, end: 201809
  12. BEXAROTENE [Concomitant]
     Active Substance: BEXAROTENE
     Dosage: 225 MG/M2 DAILY
     Route: 065
     Dates: start: 201811, end: 201903
  13. BEXAROTENE [Concomitant]
     Active Substance: BEXAROTENE
     Dosage: 300 MG/M2 DAILY
     Route: 065
     Dates: start: 202109, end: 202203

REACTIONS (4)
  - Product use in unapproved indication [Unknown]
  - Product use issue [Unknown]
  - Off label use [Unknown]
  - Drug ineffective [Unknown]
